FAERS Safety Report 8379161-8 (Version None)
Quarter: 2012Q1

REPORT INFORMATION
  Report Type: 
  Country: None (occurrence: None)
  Receive Date: 20120323
  Receipt Date: 20110316
  Transmission Date: 20120608
  Serious: Yes (Hospitalization)
  Sender: FDA-Public Use
  Company Number: 163-21880-11032163

PATIENT
  Age: 81 Year
  Sex: Female

DRUGS (5)
  1. DEXAMETHASONE [Concomitant]
  2. REVLIMID [Suspect]
     Indication: MULTIPLE MYELOMA
     Dosage: 15 MG, DAILY X 21/28 DAYS, PO
     Route: 048
     Dates: start: 20090901, end: 20101101
  3. GABAPENTIN [Concomitant]
  4. ASPIRIN [Concomitant]
  5. ALENDRONATE SODIUM [Concomitant]

REACTIONS (3)
  - RENAL FAILURE ACUTE [None]
  - HYPERCALCAEMIA [None]
  - BLOOD CREATININE INCREASED [None]
